FAERS Safety Report 10165573 (Version 1)
Quarter: 2014Q2

REPORT INFORMATION
  Report Type: Spontaneous
  Country: US (occurrence: US)
  Receive Date: 20140510
  Receipt Date: 20140510
  Transmission Date: 20141212
  Serious: Yes (Other)
  Sender: FDA-Public Use
  Company Number: US-BRISTOL-MYERS SQUIBB COMPANY-20552618

PATIENT
  Age: 39 Year
  Sex: Male

DRUGS (6)
  1. BYDUREON [Suspect]
     Indication: TYPE 2 DIABETES MELLITUS
     Dates: start: 201303, end: 20140310
  2. CRESTOR [Concomitant]
     Route: 048
  3. LISINOPRIL + HCTZ [Concomitant]
     Route: 048
  4. PRILOSEC [Concomitant]
     Route: 048
  5. METFORMIN HCL [Concomitant]
     Route: 048
  6. LEVEMIR [Concomitant]
     Route: 048

REACTIONS (1)
  - Pancreatitis [Recovering/Resolving]
